FAERS Safety Report 4480911-1 (Version None)
Quarter: 2004Q4

REPORT INFORMATION
  Report Type: 
  Country: None (occurrence: None)
  Receive Date: 20041019
  Receipt Date: 20041019
  Transmission Date: 20050328
  Serious: Yes (Other)
  Sender: FDA-Public Use
  Company Number: None

PATIENT
  Age: 43 Year
  Sex: Male

DRUGS (1)
  1. PANTOPRAZOLE (PROTONIX -WYETH PHARM) [Suspect]
     Dosage: 40 MG PO QD [PT ONELY TOOK ONE DOSE]
     Route: 048

REACTIONS (1)
  - ABDOMINAL PAIN [None]
